FAERS Safety Report 8362118-0 (Version None)
Quarter: 2012Q2

REPORT INFORMATION
  Report Type: 
  Country: None (occurrence: None)
  Receive Date: 20120515
  Receipt Date: 20120502
  Transmission Date: 20120825
  Serious: Yes (Death)
  Sender: FDA-Public Use
  Company Number: IT-TEVA-336731ISR

PATIENT
  Sex: Male

DRUGS (7)
  1. FLUOROURACIL [Suspect]
     Indication: OROPHARYNGEAL CANCER STAGE UNSPECIFIED
     Dosage: 6900 MILLIGRAM; 5G/100ML
     Route: 042
     Dates: start: 20120330, end: 20120404
  2. DOCETAXEL [Suspect]
     Indication: OROPHARYNGEAL CANCER STAGE UNSPECIFIED
     Dosage: 130 MILLIGRAM;
     Route: 042
     Dates: start: 20120330, end: 20120330
  3. TRIMETON [Concomitant]
     Indication: PREMEDICATION
     Route: 042
     Dates: start: 20120330, end: 20120330
  4. CISPLATIN [Suspect]
     Indication: OROPHARYNGEAL CANCER STAGE UNSPECIFIED
     Dosage: 130 MILLIGRAM;
     Route: 042
     Dates: start: 20120330, end: 20120330
  5. DESAMETASONE FOSFATO HOSPIRA [Concomitant]
     Indication: PREMEDICATION
     Dosage: 8MG/2ML
  6. ZANTAC [Concomitant]
     Indication: PREMEDICATION
     Dosage: 50MG/5ML
     Route: 042
     Dates: start: 20120330
  7. ALOXI [Concomitant]
     Indication: PREMEDICATION
     Route: 042
     Dates: start: 20120330, end: 20120330

REACTIONS (5)
  - DYSPHAGIA [None]
  - ORAL FUNGAL INFECTION [None]
  - LEUKOPENIA [None]
  - SEPTIC SHOCK [None]
  - THROMBOCYTOPENIA [None]
